FAERS Safety Report 13020719 (Version 1)
Quarter: 2016Q4

REPORT INFORMATION
  Report Type: Spontaneous
  Country: US (occurrence: US)
  Receive Date: 20161212
  Receipt Date: 20161212
  Transmission Date: 20170207
  Serious: Yes (Hospitalization, Other)
  Sender: FDA-Public Use
  Company Number: US-009507513-1612USA002923

PATIENT
  Sex: Female

DRUGS (10)
  1. ZETIA [Suspect]
     Active Substance: EZETIMIBE
     Indication: PAIN IN EXTREMITY
     Dosage: UNK
     Route: 048
  2. ATORVASTATIN CALCIUM. [Suspect]
     Active Substance: ATORVASTATIN CALCIUM
     Indication: PAIN IN EXTREMITY
     Dosage: UNK
     Route: 048
  3. FENOFIBRATE. [Suspect]
     Active Substance: FENOFIBRATE
     Indication: MUSCLE SPASMS
     Dosage: UNK
     Route: 048
  4. ZETIA [Suspect]
     Active Substance: EZETIMIBE
     Indication: MUSCLE SPASMS
  5. PIOGLITAZONE. [Suspect]
     Active Substance: PIOGLITAZONE
     Indication: PRODUCT USED FOR UNKNOWN INDICATION
     Dosage: UNK
     Route: 048
  6. CODEINE [Suspect]
     Active Substance: CODEINE
     Indication: NONSPECIFIC REACTION
     Dosage: UNK
     Route: 048
  7. PRAVASTATIN. [Suspect]
     Active Substance: PRAVASTATIN
     Indication: MUSCLE SPASMS
  8. PRAVASTATIN. [Suspect]
     Active Substance: PRAVASTATIN
     Indication: PAIN IN EXTREMITY
     Dosage: UNK
     Route: 048
  9. DOXYCYCLINE. [Suspect]
     Active Substance: DOXYCYCLINE
     Indication: NAUSEA
     Dosage: UNK
     Route: 048
  10. DOXYCYCLINE. [Suspect]
     Active Substance: DOXYCYCLINE
     Indication: DIARRHOEA

REACTIONS (7)
  - Muscle atrophy [Recovering/Resolving]
  - Blood cholesterol decreased [Recovering/Resolving]
  - Angina pectoris [Recovering/Resolving]
  - Cardiac disorder [Recovering/Resolving]
  - Pain in extremity [Recovering/Resolving]
  - Product use issue [Unknown]
  - Blood pressure increased [Recovering/Resolving]
